FAERS Safety Report 24187115 (Version 1)
Quarter: 2024Q3

REPORT INFORMATION
  Report Type: Spontaneous
  Country: US (occurrence: US)
  Receive Date: 20240808
  Receipt Date: 20240808
  Transmission Date: 20241016
  Serious: Yes (Other)
  Sender: AUROBINDO
  Company Number: US-MLMSERVICE-20240723-PI139056-00128-3

PATIENT
  Age: 62 Year
  Sex: Female

DRUGS (3)
  1. DACTINOMYCIN [Suspect]
     Active Substance: DACTINOMYCIN
     Indication: Nephroblastoma
     Dosage: NINE 21-DAY CYCLES
     Route: 065
  2. VINCRISTINE SULFATE [Suspect]
     Active Substance: VINCRISTINE SULFATE
     Indication: Nephroblastoma
     Dosage: 6 MILLIGRAM, NINE 21-DAY CYCLES, ON DAYS 1, 8, AND 15
     Route: 065
  3. DOXORUBICIN [Suspect]
     Active Substance: DOXORUBICIN
     Indication: Nephroblastoma
     Dosage: 45 MILLIGRAM/SQ. METER, NINE 21-DAY CYCLES
     Route: 065

REACTIONS (2)
  - Neuropathy peripheral [Unknown]
  - Nausea [Unknown]
